FAERS Safety Report 4955627-5 (Version None)
Quarter: 2006Q1

REPORT INFORMATION
  Report Type: 
  Country: None (occurrence: None)
  Receive Date: 20060328
  Receipt Date: 20060317
  Transmission Date: 20060701
  Serious: Yes (Death, Other)
  Sender: FDA-Public Use
  Company Number: US-MERCK-0603USA03244

PATIENT
  Age: 95 Year
  Sex: Male

DRUGS (1)
  1. VIOXX [Suspect]
     Route: 048
     Dates: start: 19990101, end: 20010101

REACTIONS (6)
  - CEREBROVASCULAR ACCIDENT [None]
  - CHRONIC RESPIRATORY DISEASE [None]
  - CORONARY ARTERY DISEASE [None]
  - IMMOBILE [None]
  - PULMONARY EMBOLISM [None]
  - RESPIRATORY FAILURE [None]
